FAERS Safety Report 9748927 (Version 2)
Quarter: 2014Q1

REPORT INFORMATION
  Report Type: Spontaneous
  Country: US (occurrence: US)
  Receive Date: 20131212
  Receipt Date: 20140307
  Transmission Date: 20141002
  Serious: Yes (Other)
  Sender: FDA-Public Use
  Company Number: US-BAYER-2013-150565

PATIENT
  Age: 38 Year
  Sex: Female
  Weight: 79.37 kg

DRUGS (8)
  1. MIRENA [Suspect]
     Indication: CONTRACEPTION
     Dosage: 20 MCG/24HR, CONT
     Route: 015
     Dates: start: 20120316, end: 20120405
  2. VENLAFAXINE HYDROCHLORIDE [Concomitant]
     Dosage: 100 MG, UNK
     Dates: start: 20120127
  3. KLONOPIN [Concomitant]
     Dosage: 1 MG, UNK
     Dates: start: 20120127
  4. TOPAMAX [Concomitant]
     Dosage: 200 MG, UNK
     Dates: start: 20120127
  5. ACYCLOVIR [ACICLOVIR] [Concomitant]
     Dosage: 200 MG, UNK
     Dates: start: 20120127
  6. LISINOPRIL [Concomitant]
     Dosage: 10 MG, UNK
     Dates: start: 20120127
  7. IBUPROFEN [Concomitant]
     Dosage: 800 MG, UNK
  8. CYTOTEC [Concomitant]
     Dosage: 25 ?G, UNK

REACTIONS (7)
  - Uterine perforation [None]
  - Gastrointestinal injury [None]
  - Injury [None]
  - Pain [None]
  - Anxiety [None]
  - General physical health deterioration [None]
  - Device issue [None]
